FAERS Safety Report 9783280 (Version 3)
Quarter: 2014Q2

REPORT INFORMATION
  Report Type: Spontaneous
  Country: SE (occurrence: SE)
  Receive Date: 20131226
  Receipt Date: 20140604
  Transmission Date: 20141212
  Serious: Yes (Hospitalization)
  Sender: FDA-Public Use
  Company Number: SE-ASTRAZENECA-2013SE92865

PATIENT
  Age: 71 Year
  Sex: Female

DRUGS (8)
  1. ATENOLOL [Suspect]
     Route: 065
  2. ATACAND PLUS [Suspect]
     Route: 048
  3. BRILIQUE [Suspect]
     Indication: CARDIOVASCULAR EVENT PROPHYLAXIS
     Route: 048
  4. TROMBYL [Suspect]
     Route: 065
  5. ATACAND [Suspect]
     Route: 048
  6. DOXYFERM [Concomitant]
  7. FELODIPINE [Concomitant]
  8. SIMVASTATIN [Concomitant]

REACTIONS (2)
  - Hypotension [Unknown]
  - Epistaxis [Recovered/Resolved]
